FAERS Safety Report 5941613-5 (Version None)
Quarter: 2008Q4

REPORT INFORMATION
  Report Type: 
  Country: None (occurrence: None)
  Receive Date: 20081105
  Receipt Date: 20081024
  Transmission Date: 20090506
  Serious: Yes (Death)
  Sender: FDA-Public Use
  Company Number: JP-ROCHE-594259

PATIENT
  Age: 66 Year

DRUGS (1)
  1. CELLCEPT [Suspect]
     Route: 048

REACTIONS (1)
  - DEATH [None]
